FAERS Safety Report 25245013 (Version 1)
Quarter: 2025Q2

REPORT INFORMATION
  Report Type: Spontaneous
  Country: US (occurrence: None)
  Receive Date: 20250425
  Receipt Date: 20250425
  Transmission Date: 20250717
  Serious: Yes (Death)
  Sender: FDA-CTU
  Company Number: None

PATIENT
  Sex: Female

DRUGS (2)
  1. EVEROLIMUS [Suspect]
     Active Substance: EVEROLIMUS
     Indication: Renal cancer
     Dosage: 5 MG DAILY ORAL ?
     Route: 048
     Dates: start: 20250124
  2. EVEROLIMUS [Suspect]
     Active Substance: EVEROLIMUS
     Indication: Vulval cancer stage 0

REACTIONS (1)
  - Malignant neoplasm progression [None]
